FAERS Safety Report 10399080 (Version 1)
Quarter: 2014Q1

REPORT INFORMATION
  Report Type: Spontaneous
  Country: US (occurrence: None)
  Receive Date: 20130815
  Receipt Date: 20130815
  Transmission Date: 20141002
  Serious: Yes (Life-Threatening, Hospitalization, Other)
  Sender: FDA-Public Use
  Company Number: ADR-2012-02160

PATIENT
  Age: 12 Year
  Sex: Female

DRUGS (1)
  1. LIORESAL INTRATHECAL (BACLOFEN INJECTION)2000 MCG/ML [Suspect]
     Route: 037

REACTIONS (6)
  - Drug withdrawal syndrome [None]
  - Muscle spasticity [None]
  - Convulsion [None]
  - Wound [None]
  - Implant site discharge [None]
  - Implant site infection [None]
